FAERS Safety Report 13957280 (Version 1)
Quarter: 2017Q3

REPORT INFORMATION
  Report Type: Report from Study
  Country: AT (occurrence: AT)
  Receive Date: 20170912
  Receipt Date: 20170912
  Transmission Date: 20171128
  Serious: Yes (Hospitalization)
  Sender: FDA-Public Use
  Company Number: AT-ROCHE-1987807

PATIENT
  Age: 49 Year
  Sex: Male

DRUGS (1)
  1. ATEZOLIZUMAB. [Suspect]
     Active Substance: ATEZOLIZUMAB
     Indication: TRANSITIONAL CELL CARCINOMA
     Route: 065
     Dates: start: 201704, end: 201706

REACTIONS (9)
  - Mucosal haemorrhage [Unknown]
  - Visual impairment [Unknown]
  - Gait disturbance [Unknown]
  - Thrombocytopenia [Unknown]
  - Disease progression [Unknown]
  - Malignant nervous system neoplasm [Unknown]
  - General physical health deterioration [Unknown]
  - Petechiae [Unknown]
  - Anaemia [Unknown]
